FAERS Safety Report 5829363-7 (Version None)
Quarter: 2008Q2

REPORT INFORMATION
  Report Type: 
  Country: None (occurrence: None)
  Receive Date: 20080601
  Receipt Date: 20080220
  Transmission Date: 20081010
  Serious: No
  Sender: FDA-Public Use
  Company Number: US200802005054

PATIENT
  Age: 54 Year
  Sex: Female
  Weight: 74.8 kg

DRUGS (3)
  1. BYETTA [Suspect]
     Indication: WEIGHT CONTROL
     Dosage: 5 UG, 2/D, SUBCUTANEOUS
     Route: 058
     Dates: start: 20060808, end: 20071219
  2. SYNTHROID [Concomitant]
  3. CYTOMEL [Concomitant]

REACTIONS (1)
  - WEIGHT INCREASED [None]
